FAERS Safety Report 16491624 (Version 1)
Quarter: 2019Q2

REPORT INFORMATION
  Report Type: Spontaneous
  Country: US (occurrence: US)
  Receive Date: 20190518
  Receipt Date: 20190518
  Transmission Date: 20190711
  Serious: Yes (Hospitalization)
  Sender: FDA-Public Use
  Company Number: None

PATIENT
  Age: 72 Year
  Sex: Male
  Weight: 63.4 kg

DRUGS (1)
  1. NEXAVAR [Suspect]
     Active Substance: SORAFENIB
     Dates: end: 20190224

REACTIONS (6)
  - Oedema [None]
  - Peripheral swelling [None]
  - Scrotal swelling [None]
  - Fall [None]
  - Ascites [None]
  - Hepatic cirrhosis [None]

NARRATIVE: CASE EVENT DATE: 20190224
